FAERS Safety Report 4832752-0 (Version None)
Quarter: 2005Q4

REPORT INFORMATION
  Report Type: 
  Country: None (occurrence: None)
  Receive Date: 20051108
  Receipt Date: 20051102
  Transmission Date: 20060501
  Serious: Yes (Hospitalization)
  Sender: FDA-Public Use
  Company Number: JP_051108063

PATIENT
  Age: 31 Year
  Sex: Male

DRUGS (2)
  1. HUMALOG MIX 50/50 [Suspect]
     Indication: DIABETES MELLITUS
     Dosage: 11 U DAY
     Dates: start: 20050901, end: 20051101
  2. HUMALOG [Suspect]
     Indication: DIABETES MELLITUS
     Dosage: 30 U DAY
     Dates: start: 20050901, end: 20051101

REACTIONS (3)
  - ALANINE AMINOTRANSFERASE INCREASED [None]
  - ASPARTATE AMINOTRANSFERASE INCREASED [None]
  - LIVER DISORDER [None]
